FAERS Safety Report 5196830-1 (Version None)
Quarter: 2007Q1

REPORT INFORMATION
  Report Type: 
  Country: None (occurrence: None)
  Receive Date: 20070103
  Receipt Date: 20061228
  Transmission Date: 20070707
  Serious: Yes (Other)
  Sender: FDA-Public Use
  Company Number: US-JNJFOC-20061206976

PATIENT
  Sex: Female

DRUGS (2)
  1. PEPCID AC [Suspect]
     Route: 048
  2. PEPCID AC [Suspect]
     Indication: DYSPEPSIA
     Dosage: ^FOR SEVERAL WEEKS^
     Route: 048

REACTIONS (2)
  - TINNITUS [None]
  - VERTIGO [None]
